FAERS Safety Report 9252313 (Version 1)
Quarter: 2013Q1

REPORT INFORMATION
  Report Type: Spontaneous
  Country: US (occurrence: None)
  Receive Date: 20130305
  Receipt Date: 20130305
  Transmission Date: 20140127
  Serious: Yes (Other)
  Sender: FDA-Public Use
  Company Number: 163-21880-12083118

PATIENT
  Age: 63 Year
  Sex: Male
  Weight: 112.95 kg

DRUGS (7)
  1. REVLIMID [Suspect]
     Dosage: 25 MG, 21 IN 21 D, PO
     Route: 048
     Dates: start: 2008, end: 20120828
  2. BABY ASPIRIN (ACETYLSALICYLIC ACID) [Concomitant]
  3. COMPAZINE(PROCHLORPERAZINE EDISYLATE) [Concomitant]
  4. DEXAMETHASONE [Concomitant]
  5. HYDROCHLOROTHIAZIDE(HYDROCHLOROTHIAZIDE) [Concomitant]
  6. LISINOPRIL(LISINOPRIL [Concomitant]
  7. OMEPRAZOLE(OMEPRAZOLE) [Concomitant]

REACTIONS (2)
  - Pancytopenia [None]
  - Asthenia [None]
